FAERS Safety Report 15213024 (Version 2)
Quarter: 2018Q3

REPORT INFORMATION
  Report Type: Report from Study
  Country: NL (occurrence: NL)
  Receive Date: 20180730
  Receipt Date: 20180802
  Transmission Date: 20181010
  Serious: Yes (Life-Threatening, Hospitalization)
  Sender: FDA-Public Use
  Company Number: NL-ROCHE-2159397

PATIENT
  Age: 69 Year
  Sex: Male

DRUGS (9)
  1. TOCILIZUMAB. [Suspect]
     Active Substance: TOCILIZUMAB
     Indication: RHEUMATOID ARTHRITIS
     Dosage: LAST DOSE ON 12/JUN/2018
     Route: 058
     Dates: start: 20160914
  2. PREDNISOLON [Suspect]
     Active Substance: PREDNISOLONE
     Indication: RHEUMATOID ARTHRITIS
     Route: 050
     Dates: start: 20180116
  3. METHOTREXATE (METHOTREXATE SODIUM) [Suspect]
     Active Substance: METHOTREXATE SODIUM
     Indication: RHEUMATOID ARTHRITIS
     Dosage: LAST DOSE ON 12/JUN/2018
     Route: 050
     Dates: start: 20180116
  4. ALENDRONINEZUUR [Concomitant]
     Active Substance: ALENDRONIC ACID
     Route: 065
  5. CITALOPRAM [Concomitant]
     Active Substance: CITALOPRAM HYDROBROMIDE
     Route: 065
  6. DICLOFENAC AL RETARD [Concomitant]
     Route: 065
  7. OMEPRAZOL [Concomitant]
     Active Substance: OMEPRAZOLE
     Route: 065
  8. FENPROCOUMON [Concomitant]
     Active Substance: PHENPROCOUMON
  9. FOLIUMZUUR [Concomitant]
     Active Substance: FOLIC ACID
     Route: 065

REACTIONS (2)
  - Progressive multifocal leukoencephalopathy [Recovering/Resolving]
  - JC virus CSF test positive [Unknown]

NARRATIVE: CASE EVENT DATE: 20180612
